FAERS Safety Report 8187479-7 (Version None)
Quarter: 2012Q1

REPORT INFORMATION
  Report Type: 
  Country: None (occurrence: None)
  Receive Date: 20120302
  Receipt Date: 20120216
  Transmission Date: 20120608
  Serious: Yes (Other)
  Sender: FDA-Public Use
  Company Number: VAL_00710_2012

PATIENT
  Sex: Female

DRUGS (3)
  1. PEGASYS [Suspect]
     Indication: HEPATITIS C
     Dosage: (135 UG 1X/WEEK SUBCUTANEOUS)
     Route: 058
     Dates: start: 20110415, end: 20120203
  2. COPEGUS [Suspect]
     Indication: HEPATITIS C
     Dosage: (300 MG BID ORAL)
     Route: 048
     Dates: start: 20110415, end: 20120209
  3. ROCALTROL [Suspect]
     Indication: HEPATITIS C
     Dosage: (0.25 UG BID ORAL)
     Route: 048
     Dates: start: 20110415, end: 20120209

REACTIONS (1)
  - PLATELET COUNT DECREASED [None]
